FAERS Safety Report 8507152-2 (Version None)
Quarter: 2012Q3

REPORT INFORMATION
  Report Type: 
  Country: None (occurrence: None)
  Receive Date: 20120703
  Receipt Date: 20120702
  Transmission Date: 20120928
  Serious: Yes (Hospitalization, Other)
  Sender: FDA-Public Use
  Company Number: 2009SP041027

PATIENT
  Age: 22 Year
  Sex: Female
  Weight: 113.3993 kg

DRUGS (1)
  1. NUVARING [Suspect]
     Indication: CONTRACEPTION
     Dosage: VAG
     Route: 067
     Dates: start: 20060301, end: 20071201

REACTIONS (27)
  - ISCHAEMIA [None]
  - KIDNEY SMALL [None]
  - MENORRHAGIA [None]
  - LUNG CYST [None]
  - HEADACHE [None]
  - BRONCHIAL HYPERREACTIVITY [None]
  - RHINORRHOEA [None]
  - BRONCHITIS [None]
  - ATELECTASIS [None]
  - CONDITION AGGRAVATED [None]
  - TACHYCARDIA [None]
  - PLEURAL EFFUSION [None]
  - SPLENOMEGALY [None]
  - UPPER-AIRWAY COUGH SYNDROME [None]
  - RESPIRATORY TRACT CONGESTION [None]
  - CHLAMYDIA TEST POSITIVE [None]
  - PULMONARY EMBOLISM [None]
  - FACTOR V LEIDEN MUTATION [None]
  - HEPATIC MASS [None]
  - PALPITATIONS [None]
  - INTERNATIONAL NORMALISED RATIO DECREASED [None]
  - LUNG NEOPLASM [None]
  - ECONOMIC PROBLEM [None]
  - ASTHMA [None]
  - THROMBOSIS [None]
  - HEPATIC CYST [None]
  - VIRAL UPPER RESPIRATORY TRACT INFECTION [None]
